FAERS Safety Report 8764053 (Version 1)
Quarter: 2012Q4

REPORT INFORMATION
  Report Type: 
  Country: US (occurrence: US)
  Receive Date: 20120831
  Receipt Date: 20120831
  Transmission Date: 20130627
  Serious: Yes (Hospitalization)
  Sender: FDA-Public Use
  Company Number: US-PFIZER INC-2012213046

PATIENT
  Age: 83 Year
  Sex: Female
  Weight: 71 kg

DRUGS (1)
  1. TIKOSYN [Suspect]
     Dosage: 250 ug, 2x/day
     Route: 048
     Dates: end: 20120829

REACTIONS (1)
  - Renal failure acute [Recovered/Resolved]
